FAERS Safety Report 4856098-X (Version None)
Quarter: 2005Q4

REPORT INFORMATION
  Report Type: 
  Country: None (occurrence: None)
  Receive Date: 20051216
  Receipt Date: 20051208
  Transmission Date: 20060501
  Serious: Yes (Hospitalization)
  Sender: FDA-Public Use
  Company Number: DE-MERCK-0512DEU00049

PATIENT
  Age: 68 Year
  Sex: Female

DRUGS (2)
  1. SINGULAIR [Suspect]
     Indication: COUGH
     Route: 048
     Dates: start: 20051207, end: 20051207
  2. CODEINE [Concomitant]
     Route: 065

REACTIONS (2)
  - MYOCLONUS [None]
  - OVERDOSE [None]
